FAERS Safety Report 10052511 (Version 1)
Quarter: 2014Q2

REPORT INFORMATION
  Report Type: Spontaneous
  Country: US (occurrence: None)
  Receive Date: 20140401
  Receipt Date: 20140401
  Transmission Date: 20141212
  Serious: Yes (Other)
  Sender: FDA-Public Use
  Company Number: None

PATIENT
  Age: 66 Year
  Sex: Female
  Weight: 50.35 kg

DRUGS (11)
  1. NAPROXEN [Suspect]
     Indication: BURSITIS
     Dosage: 2 PILLS DAILY MOUTH
     Route: 048
     Dates: start: 20140306, end: 20140319
  2. CALCIUM GUMMY [Concomitant]
  3. TUMS [Concomitant]
  4. PEPTO BISMOL [Concomitant]
  5. ADVIL [Concomitant]
  6. KIRKLAND ACID REDUCER [Concomitant]
  7. CENTRUM MULTIVITAMIN/MULTIMINERAL SUPPLEMENT [Concomitant]
  8. FIBERWELL GUMMIES [Concomitant]
  9. ZYRTEC [Concomitant]
  10. VITAFUSION [Concomitant]
  11. RANITIDINE [Concomitant]

REACTIONS (3)
  - Abdominal pain upper [None]
  - Dizziness [None]
  - Rash [None]
